APPROVED DRUG PRODUCT: VINBLASTINE SULFATE
Active Ingredient: VINBLASTINE SULFATE
Strength: 10MG/VIAL
Dosage Form/Route: INJECTABLE;INJECTION
Application: A089395 | Product #001
Applicant: HIKMA PHARMACEUTICALS USA INC
Approved: Apr 9, 1987 | RLD: No | RS: Yes | Type: RX